FAERS Safety Report 9617149 (Version 1)
Quarter: 2013Q4

REPORT INFORMATION
  Report Type: Spontaneous
  Country: US (occurrence: US)
  Receive Date: 20131011
  Receipt Date: 20131011
  Transmission Date: 20140711
  Serious: No
  Sender: FDA-Public Use
  Company Number: US-PFIZER INC-2013291114

PATIENT
  Sex: Female

DRUGS (2)
  1. LYRICA [Suspect]
     Dosage: 150 MG, 1X/DAY
     Dates: start: 20130902
  2. LYRICA [Suspect]
     Dosage: 250 MG, UNK
     Dates: start: 20131007

REACTIONS (4)
  - Local swelling [Unknown]
  - Local swelling [Unknown]
  - Drug ineffective [Unknown]
  - Nightmare [Unknown]
